FAERS Safety Report 21817114 (Version 1)
Quarter: 2023Q1

REPORT INFORMATION
  Report Type: Spontaneous
  Country: CN (occurrence: CN)
  Receive Date: 20230104
  Receipt Date: 20230104
  Transmission Date: 20230418
  Serious: Yes (Other)
  Sender: FDA-Public Use
  Company Number: CN-PFIZER INC-PV202300000184

PATIENT
  Age: 40 Year
  Sex: Female
  Weight: 61 kg

DRUGS (2)
  1. METHYLPREDNISOLONE [Suspect]
     Active Substance: METHYLPREDNISOLONE
     Indication: Dermatomyositis
     Dosage: 10 TABLETS
     Route: 048
     Dates: start: 20200413
  2. MYCOPHENOLATE MOFETIL [Suspect]
     Active Substance: MYCOPHENOLATE MOFETIL
     Indication: Dermatomyositis
     Dosage: 2 TABLETS, 2X/DAY
     Route: 048
     Dates: start: 20200413

REACTIONS (4)
  - Drug-induced liver injury [Recovering/Resolving]
  - Thyroid mass [Unknown]
  - Hepatic function abnormal [Recovering/Resolving]
  - Albumin urine [Unknown]

NARRATIVE: CASE EVENT DATE: 20221102
